FAERS Safety Report 8236456-6 (Version None)
Quarter: 2012Q1

REPORT INFORMATION
  Report Type: 
  Country: None (occurrence: None)
  Receive Date: 20120327
  Receipt Date: 20120322
  Transmission Date: 20120608
  Serious: Yes (Hospitalization)
  Sender: FDA-Public Use
  Company Number: DE-AMGEN-DEUSP2012018369

PATIENT
  Age: 62 Year
  Sex: Female

DRUGS (3)
  1. PROLIA [Suspect]
  2. PROLIA [Suspect]
     Indication: OSTEOPOROSIS
     Dosage: UNK
     Dates: start: 20100915
  3. PROLIA [Suspect]
     Dosage: UNK
     Dates: start: 20110909

REACTIONS (4)
  - PATHOGEN RESISTANCE [None]
  - PAIN [None]
  - URINARY TRACT INFECTION [None]
  - HAEMATURIA [None]
